FAERS Safety Report 7029532-7 (Version None)
Quarter: 2010Q3

REPORT INFORMATION
  Report Type: 
  Country: None (occurrence: None)
  Receive Date: 20100930
  Receipt Date: 20100914
  Transmission Date: 20110219
  Serious: Yes (Hospitalization)
  Sender: FDA-Public Use
  Company Number: 2010002581

PATIENT
  Age: 65 Year
  Sex: Male

DRUGS (9)
  1. ERLOTINIB HYDROCHLORIDE [Suspect]
     Indication: LARYNGEAL CANCER
     Dosage: (150 MG, QD), ORAL
     Route: 048
     Dates: start: 20100208, end: 20100914
  2. AZACITIDINE [Suspect]
     Indication: LARYNGEAL CANCER
     Dosage: (190 MG), SUBCUTANEOUS
     Route: 058
     Dates: start: 20100208, end: 20100910
  3. FENTANYL-100 [Concomitant]
  4. PERCOCET [Concomitant]
  5. DIGOXIN [Concomitant]
  6. CARVEDILOL [Concomitant]
  7. SPIRONOLACTONE [Concomitant]
  8. LISINOPRIL [Concomitant]
  9. ROXICET [Concomitant]

REACTIONS (14)
  - BLOOD PHOSPHORUS DECREASED [None]
  - BLOOD SODIUM DECREASED [None]
  - BRAIN NATRIURETIC PEPTIDE INCREASED [None]
  - BRONCHOPNEUMONIA [None]
  - CONDITION AGGRAVATED [None]
  - CONFUSIONAL STATE [None]
  - HAEMATOCRIT DECREASED [None]
  - HAEMOGLOBIN DECREASED [None]
  - HYPOTENSION [None]
  - LEUKOPENIA [None]
  - NEUTROPENIA [None]
  - PLATELET COUNT INCREASED [None]
  - PYREXIA [None]
  - RED BLOOD CELL COUNT DECREASED [None]
